FAERS Safety Report 6170805-8 (Version None)
Quarter: 2009Q2

REPORT INFORMATION
  Report Type: 
  Country: None (occurrence: None)
  Receive Date: 20090427
  Receipt Date: 20090413
  Transmission Date: 20091009
  Serious: Yes (Hospitalization)
  Sender: FDA-Public Use
  Company Number: 2009AL002140

PATIENT
  Age: 73 Year
  Sex: Female

DRUGS (10)
  1. CITALOPRAM HYDROBROMIDE [Suspect]
     Indication: DEPRESSION
     Dosage: 40 MG; QD;
  2. FLUCONAZOLE [Concomitant]
  3. CLONAZEPAM [Concomitant]
  4. LEVOFLOXACIN [Concomitant]
  5. ACYCLOVIR [Concomitant]
  6. METOPROLOL TARTRATE [Concomitant]
  7. VANCOMYCIN HCL [Concomitant]
  8. AMLODIPINE [Concomitant]
  9. VALSARTAN [Concomitant]
  10. PANTOPRAZOLE SODIUM [Concomitant]

REACTIONS (14)
  - ABNORMAL BEHAVIOUR [None]
  - ASTERIXIS [None]
  - BLOOD CALCIUM DECREASED [None]
  - BLOOD GLUCOSE INCREASED [None]
  - BLOOD POTASSIUM DECREASED [None]
  - BLOOD SODIUM DECREASED [None]
  - DRUG INTERACTION [None]
  - INTERNATIONAL NORMALISED RATIO DECREASED [None]
  - LETHARGY [None]
  - PANCYTOPENIA [None]
  - POSITRON EMISSION TOMOGRAM ABNORMAL [None]
  - PSYCHOMOTOR RETARDATION [None]
  - SEROTONIN SYNDROME [None]
  - SOMNOLENCE [None]
